FAERS Safety Report 16524195 (Version 1)
Quarter: 2019Q3

REPORT INFORMATION
  Report Type: Other
  Country: GB (occurrence: GB)
  Receive Date: 20190703
  Receipt Date: 20190703
  Transmission Date: 20191004
  Serious: Yes (Hospitalization)
  Sender: FDA-Public Use
  Company Number: GB-HERITAGE PHARMACEUTICALS-2019HTG00306

PATIENT
  Age: 46 Year
  Sex: Female
  Weight: 49.85 kg

DRUGS (10)
  1. INDOMETHACIN. [Suspect]
     Active Substance: INDOMETHACIN
     Indication: HEADACHE
     Dosage: 75 MG, 1X/DAY
     Dates: start: 20190319, end: 20190527
  2. AMITRIPTYLINE [Concomitant]
     Active Substance: AMITRIPTYLINE
  3. PROPRANOLOL [Suspect]
     Active Substance: PROPRANOLOL HYDROCHLORIDE
     Dosage: 80 MG, 1X/DAY
     Dates: start: 201904
  4. GABAPENTIN. [Concomitant]
     Active Substance: GABAPENTIN
  5. PROCHLORPERAZINE. [Concomitant]
     Active Substance: PROCHLORPERAZINE
  6. RIZATRIPTAN. [Concomitant]
     Active Substance: RIZATRIPTAN
  7. COLECALCIFEROL [Concomitant]
     Active Substance: CHOLECALCIFEROL
  8. LANSOPRAZOLE. [Concomitant]
     Active Substance: LANSOPRAZOLE
  9. COCODAMOL [Concomitant]
     Active Substance: ACETAMINOPHEN\CODEINE PHOSPHATE
  10. TOPIRAMATE. [Concomitant]
     Active Substance: TOPIRAMATE

REACTIONS (9)
  - Melaena [Not Recovered/Not Resolved]
  - Syncope [Unknown]
  - Photopsia [Unknown]
  - Myalgia [Unknown]
  - Haematemesis [Not Recovered/Not Resolved]
  - Diarrhoea [Unknown]
  - Nausea [Unknown]
  - Asthenia [Unknown]
  - Lethargy [Unknown]

NARRATIVE: CASE EVENT DATE: 2019
